FAERS Safety Report 6355807-0 (Version None)
Quarter: 2009Q3

REPORT INFORMATION
  Report Type: 
  Country: None (occurrence: None)
  Receive Date: 20090915
  Receipt Date: 20070605
  Transmission Date: 20100115
  Serious: Yes (Other)
  Sender: FDA-Public Use
  Company Number: US-ASTRAZENECA-2006UW07681

PATIENT
  Age: 29 Year
  Sex: Female
  Weight: 113.4 kg

DRUGS (10)
  1. SEROQUEL [Suspect]
     Indication: ANXIETY
     Route: 048
     Dates: start: 20011001
  2. SEROQUEL [Suspect]
     Indication: DEPRESSION
     Route: 048
     Dates: start: 20011001
  3. SEROQUEL [Suspect]
     Indication: SLEEP DISORDER
     Route: 048
     Dates: start: 20011001
  4. SEROQUEL [Suspect]
     Route: 048
     Dates: start: 20011001, end: 20051112
  5. SEROQUEL [Suspect]
     Route: 048
     Dates: start: 20011001, end: 20051112
  6. SEROQUEL [Suspect]
     Route: 048
     Dates: start: 20011001, end: 20051112
  7. WELLBUTRIN XL [Concomitant]
     Route: 048
     Dates: start: 20040101
  8. KLONOPIN [Concomitant]
     Route: 048
     Dates: start: 20040101
  9. LEVAQUIN [Concomitant]
     Route: 048
     Dates: start: 20051110
  10. PREDNISONE [Concomitant]
     Dosage: 40 MG FOR THREE DAYS, 20 MG THREE DAYS, 10 MG FOR THREE DAYS
     Route: 048
     Dates: start: 20051110

REACTIONS (3)
  - DIABETES MELLITUS [None]
  - DIABETIC NEPHROPATHY [None]
  - TYPE 2 DIABETES MELLITUS [None]
